FAERS Safety Report 25730579 (Version 1)
Quarter: 2025Q3

REPORT INFORMATION
  Report Type: Spontaneous
  Country: EU (occurrence: EU)
  Receive Date: 20250827
  Receipt Date: 20250827
  Transmission Date: 20251020
  Serious: Yes (Hospitalization, Other)
  Sender: CHEPLAPHARM
  Company Number: None

PATIENT
  Age: 51 Year
  Sex: Female

DRUGS (10)
  1. QUETIAPINE [Suspect]
     Active Substance: QUETIAPINE
     Indication: Bipolar disorder
     Dosage: 0+0+1?DAILY DOSE: 25 MILLIGRAM
     Route: 048
     Dates: end: 20230527
  2. ANAFRANIL [Suspect]
     Active Substance: CLOMIPRAMINE HYDROCHLORIDE
     Indication: Depression
     Dosage: 2+0+3?DAILY DOSE: 125 MILLIGRAM
     Route: 048
  3. ANAFRANIL [Suspect]
     Active Substance: CLOMIPRAMINE HYDROCHLORIDE
     Indication: Bipolar disorder
     Dosage: 2+0+3?DAILY DOSE: 125 MILLIGRAM
     Route: 048
  4. ANAFRANIL [Suspect]
     Active Substance: CLOMIPRAMINE HYDROCHLORIDE
     Indication: Depression
     Dosage: REDUCED FROM 125 MG TO 75 MG DAILY?DAILY DOSE: 75 MILLIGRAM
     Route: 048
  5. ANAFRANIL [Suspect]
     Active Substance: CLOMIPRAMINE HYDROCHLORIDE
     Indication: Bipolar disorder
     Dosage: REDUCED FROM 125 MG TO 75 MG DAILY?DAILY DOSE: 75 MILLIGRAM
     Route: 048
  6. LAMOTRIGINE [Suspect]
     Active Substance: LAMOTRIGINE
     Indication: Bipolar disorder
     Dosage: 50MG X4?DAILY DOSE: 50 MILLIGRAM
     Route: 048
  7. LAMOTRIGINE [Suspect]
     Active Substance: LAMOTRIGINE
     Indication: Bipolar disorder
     Dosage: REDUCED TO 150 MG IN THE EVENING, WITH FURTHER ADJUSTMENT POSSIBLE DEPENDING ON THE RESPONSE TO L...
     Route: 048
  8. OXAZEPAM [Concomitant]
     Active Substance: OXAZEPAM
     Route: 048
  9. TRIMEPRAZINE [Concomitant]
     Active Substance: TRIMEPRAZINE
  10. ZOPICLONE [Concomitant]
     Active Substance: ZOPICLONE
     Route: 048

REACTIONS (5)
  - Muscle twitching [Recovered/Resolved]
  - Balance disorder [Recovered/Resolved]
  - Tremor [Recovered/Resolved]
  - Serotonin syndrome [Recovering/Resolving]
  - Eye disorder [Recovering/Resolving]

NARRATIVE: CASE EVENT DATE: 20230529
